FAERS Safety Report 16128163 (Version 2)
Quarter: 2020Q4

REPORT INFORMATION
  Report Type: Spontaneous
  Country: US (occurrence: US)
  Receive Date: 20190328
  Receipt Date: 20201210
  Transmission Date: 20210113
  Serious: No
  Sender: FDA-Public Use
  Company Number: US-SA-2019SA081017

PATIENT

DRUGS (7)
  1. MUPIROCIN. [Concomitant]
     Active Substance: MUPIROCIN
  2. ALLEGRA ALLERGY [Concomitant]
     Active Substance: FEXOFENADINE HYDROCHLORIDE
  3. BETAMETHASONE. [Concomitant]
     Active Substance: BETAMETHASONE
  4. DUPIXENT [Suspect]
     Active Substance: DUPILUMAB
     Indication: DERMATITIS ATOPIC
     Dosage: 300 MG, QOW
     Route: 058
     Dates: start: 20191031
  5. PREDNISONE. [Concomitant]
     Active Substance: PREDNISONE
  6. FLUCONAZOLE. [Concomitant]
     Active Substance: FLUCONAZOLE
  7. CEPHALEXINE [Concomitant]
     Active Substance: CEPHALEXIN

REACTIONS (2)
  - Skin irritation [Unknown]
  - Eye pruritus [Unknown]
